FAERS Safety Report 6217556-9 (Version None)
Quarter: 2009Q2

REPORT INFORMATION
  Report Type: 
  Country: None (occurrence: None)
  Receive Date: 20090608
  Receipt Date: 20090219
  Transmission Date: 20091009
  Serious: No
  Sender: FDA-Public Use
  Company Number: A0769508A

PATIENT
  Age: 48 Year
  Sex: Male

DRUGS (6)
  1. WELLBUTRIN XL [Suspect]
     Indication: DEPRESSION
     Dosage: 150MG PER DAY
     Route: 048
     Dates: start: 20081101, end: 20090122
  2. BUPROPION HCL [Suspect]
     Dosage: 150MG PER DAY
     Route: 048
     Dates: start: 20090122
  3. LUNESTA [Concomitant]
  4. TOPAMAX [Concomitant]
  5. BUSPIRONE HCL [Concomitant]
  6. TRAZODONE HCL [Concomitant]

REACTIONS (1)
  - ALOPECIA [None]
